FAERS Safety Report 8841008 (Version 1)
Quarter: 2012Q4

REPORT INFORMATION
  Report Type: 
  Country: US (occurrence: US)
  Receive Date: 20121015
  Receipt Date: 20121015
  Transmission Date: 20130627
  Serious: Yes (Other)
  Sender: FDA-Public Use
  Company Number: US-ROCHE-1140991

PATIENT
  Sex: Male
  Weight: 37 kg

DRUGS (4)
  1. PROTROPIN [Suspect]
     Indication: GROWTH HORMONE DEFICIENCY
     Dosage: 0.3mg/kg/wk
     Route: 058
     Dates: start: 19930819
  2. PROTROPIN [Suspect]
     Indication: DWARFISM
  3. IMURAN [Concomitant]
  4. CYCLOSPORINE [Concomitant]

REACTIONS (3)
  - Renal disorder [Unknown]
  - Hepatitis [Unknown]
  - Pruritus [Unknown]
